FAERS Safety Report 11391902 (Version 1)
Quarter: 2015Q3

REPORT INFORMATION
  Report Type: Spontaneous
  Country: US (occurrence: US)
  Receive Date: 20150818
  Receipt Date: 20150818
  Transmission Date: 20151125
  Serious: No
  Sender: FDA-Public Use
  Company Number: US-SHIRE-US201510024

PATIENT
  Sex: Female

DRUGS (1)
  1. ADDERALL XR [Suspect]
     Active Substance: AMPHETAMINE ASPARTATE\AMPHETAMINE SULFATE\DEXTROAMPHETAMINE SACCHARATE\DEXTROAMPHETAMINE SULFATE
     Indication: PRODUCT USED FOR UNKNOWN INDICATION
     Dosage: 30 MG, 1X/DAY:QD
     Route: 048
     Dates: end: 2015

REACTIONS (5)
  - Performance status decreased [Unknown]
  - Drug ineffective [Recovered/Resolved]
  - Unevaluable event [Unknown]
  - Psychomotor hyperactivity [Unknown]
  - Prescribed overdose [Recovered/Resolved]
